FAERS Safety Report 8500577-0 (Version None)
Quarter: 2012Q3

REPORT INFORMATION
  Report Type: 
  Country: None (occurrence: None)
  Receive Date: 20120710
  Receipt Date: 20120705
  Transmission Date: 20120928
  Serious: Yes (Death)
  Sender: FDA-Public Use
  Company Number: IT-ROCHE-1080200

PATIENT
  Sex: Female

DRUGS (3)
  1. XELODA [Concomitant]
     Route: 048
     Dates: start: 20111116, end: 20111116
  2. AVASTIN [Suspect]
     Indication: COLON CANCER
     Route: 042
     Dates: start: 20111117, end: 20111117
  3. IRINOTECAN HYDROCHLORIDE [Suspect]
     Indication: PRODUCT USED FOR UNKNOWN INDICATION
     Route: 042
     Dates: start: 20111116, end: 20111116

REACTIONS (4)
  - NEUTROPENIA [None]
  - HELLP SYNDROME [None]
  - DIARRHOEA [None]
  - THROMBOCYTOPENIA [None]
